FAERS Safety Report 8963987 (Version 2)
Quarter: 2014Q2

REPORT INFORMATION
  Report Type: Spontaneous
  Country: US (occurrence: US)
  Receive Date: 20121214
  Receipt Date: 20140404
  Transmission Date: 20141212
  Serious: Yes (Hospitalization, Other)
  Sender: FDA-Public Use
  Company Number: US-BAYER-2012-130110

PATIENT
  Age: 19 Year
  Sex: Female

DRUGS (6)
  1. YAZ [Suspect]
     Indication: ACNE
     Dosage: UNK
     Dates: start: 200804
  2. PREVACID [Concomitant]
  3. BENTYL [Concomitant]
     Dosage: UNK
     Dates: start: 20091117
  4. ZOSYN [Concomitant]
  5. MOTRIN [Concomitant]
  6. LORTAB [Concomitant]

REACTIONS (5)
  - Cholelithiasis [None]
  - Injury [None]
  - Pain [None]
  - Pain [None]
  - Cholecystitis [None]
